FAERS Safety Report 8978582 (Version 6)
Quarter: 2013Q2

REPORT INFORMATION
  Report Type: Report from Study
  Country: US (occurrence: US)
  Receive Date: 20121221
  Receipt Date: 20130411
  Transmission Date: 20140414
  Serious: Yes (Hospitalization, Other)
  Sender: FDA-Public Use
  Company Number: US-BRISTOL-MYERS SQUIBB COMPANY-17219460

PATIENT
  Age: 9 Year
  Sex: Female

DRUGS (24)
  1. DASATINIB [Suspect]
     Indication: ACUTE LYMPHOCYTIC LEUKAEMIA
     Dosage: 20NOV12-8DEC12?RESTARTED:19DEC12,INTERRUPTED ON 30DEC12,RESTARTED ON 09JAN13
     Route: 048
     Dates: start: 20121120
  2. IFOSFAMIDE [Suspect]
     Indication: ACUTE LYMPHOCYTIC LEUKAEMIA
     Route: 042
     Dates: start: 20121128, end: 20121130
  3. ETOPOSIDE [Suspect]
     Indication: ACUTE LYMPHOCYTIC LEUKAEMIA
     Dosage: STOPPED ON 22-DEC-2012
     Route: 042
     Dates: start: 20121221, end: 20121223
  4. METHOTREXATE [Suspect]
     Indication: ACUTE LYMPHOCYTIC LEUKAEMIA
     Dosage: 4550MG 27-NOV-2012, 12 MG ON 24-DEC-2012
     Route: 037
     Dates: start: 20121127
  5. VINCRISTINE [Suspect]
     Indication: ACUTE LYMPHOCYTIC LEUKAEMIA
     Dosage: 28-28NOV12, 02DEC-02DEC12
     Route: 042
     Dates: start: 20121128
  6. CYTARABINE [Suspect]
     Indication: ACUTE LYMPHOCYTIC LEUKAEMIA
     Dosage: 20-DEC-2012, 24-DEC-2012
     Route: 042
     Dates: start: 20121219
  7. DAUNORUBICIN [Suspect]
     Indication: ACUTE LYMPHOCYTIC LEUKAEMIA
     Route: 042
     Dates: start: 20121201, end: 20121201
  8. PEGASPARGASE [Suspect]
     Indication: ACUTE LYMPHOCYTIC LEUKAEMIA
     Dosage: 02-DEC TO 03-DEC-2012:1DF:2275 UNITS?ABOUT 10 PERCENT OF HER PEG ASPARAGINASE DOSE ON 24-DEC-2012
     Route: 042
     Dates: start: 20121202
  9. ELSPAR [Suspect]
     Indication: ACUTE LYMPHOCYTIC LEUKAEMIA
     Dosage: DF-22,750 UNITS.
     Route: 042
     Dates: start: 20121202, end: 20121202
  10. DEXAMETHASONE [Suspect]
     Indication: ACUTE LYMPHOCYTIC LEUKAEMIA
     Route: 048
     Dates: start: 20121127, end: 20121223
  11. G-CSF [Suspect]
     Indication: ACUTE LYMPHOCYTIC LEUKAEMIA
     Dates: start: 20121224
  12. HYDROCORTISONE [Suspect]
     Route: 037
     Dates: start: 20121224
  13. DIPHENHYDRAMINE [Concomitant]
     Dosage: 23MG,25MG.
     Route: 048
     Dates: start: 20121127, end: 20121204
  14. ONDANSETRON [Concomitant]
     Dosage: 10-10OCT12, 13-19OCT12, 27-29OCT12
     Route: 042
     Dates: start: 20121010, end: 20121204
  15. SODIUM CHLORIDE [Concomitant]
     Dosage: 03-10AUG12, 09-09OCT12, 19-19OCT12, 24-26OCT12, 12OCT12-ONG (NASAL SPRAY)?2,3DEC12 0.9% INJ
     Dates: start: 20120803
  16. LORATADINE [Concomitant]
     Dosage: 29,30NOV12,01DEC12,02DEC12,03DEC12
     Route: 048
     Dates: start: 20121127, end: 20121204
  17. DEXTROSE [Concomitant]
  18. EPIPEN [Concomitant]
     Dates: start: 20121202, end: 20121202
  19. LASIX [Concomitant]
     Route: 042
     Dates: start: 20121129, end: 20121129
  20. CHLORHEXIDINE GLUCONATE + BENZYDAMINE HCL [Concomitant]
     Dates: start: 20121127, end: 20121204
  21. FAMOTIDINE INJ [Concomitant]
     Route: 042
     Dates: start: 20121127, end: 20121204
  22. LEUCOVORIN [Concomitant]
     Route: 048
     Dates: start: 20121129, end: 20121201
  23. SULFAMETHOXAZOLE + TRIMETHOPRIM [Concomitant]
     Dosage: DF:400-80MG,TABS.
     Route: 048
     Dates: start: 20121202, end: 20121204
  24. ACETAMINOPHEN [Concomitant]
     Indication: PREMEDICATION
     Route: 048

REACTIONS (9)
  - Febrile neutropenia [Recovered/Resolved]
  - Dehydration [Recovered/Resolved]
  - Hyponatraemia [Recovered/Resolved]
  - Mucosal inflammation [Recovered/Resolved]
  - Pneumonia [Recovered/Resolved]
  - Diarrhoea [Recovered/Resolved]
  - Thrombocytopenia [Recovered/Resolved]
  - Enterocolitis [Recovered/Resolved]
  - Hypokalaemia [Recovered/Resolved]
